FAERS Safety Report 5231219-8 (Version None)
Quarter: 2007Q1

REPORT INFORMATION
  Report Type: 
  Country: None (occurrence: None)
  Receive Date: 20070205
  Receipt Date: 20070205
  Transmission Date: 20070707
  Serious: Yes (Hospitalization)
  Sender: FDA-Public Use
  Company Number: None

PATIENT
  Sex: Female
  Weight: 68 kg

DRUGS (1)
  1. CEFTRIAXONE [Suspect]
     Indication: AMYOTROPHIC LATERAL SCLEROSIS
     Dosage: 2 G Q 12 HRS IV
     Route: 042
     Dates: start: 20061005, end: 20061014

REACTIONS (2)
  - ARTHRALGIA [None]
  - PYREXIA [None]
